FAERS Safety Report 9552945 (Version 1)
Quarter: 2013Q3

REPORT INFORMATION
  Report Type: Spontaneous
  Country: US (occurrence: None)
  Receive Date: 20130724
  Receipt Date: 20130724
  Transmission Date: 20140515
  Serious: Yes (Other)
  Sender: FDA-Public Use
  Company Number: PHEH2013US003036

PATIENT
  Age: 65 Year
  Sex: Female

DRUGS (1)
  1. GLEEVEC [Suspect]
     Indication: UTERINE CANCER
     Route: 048
     Dates: start: 20090101

REACTIONS (6)
  - Urinary tract infection [None]
  - Balance disorder [None]
  - Diarrhoea [None]
  - Oedema [None]
  - Flatulence [None]
  - Abdominal distension [None]
